FAERS Safety Report 9014289 (Version 1)
Quarter: 2013Q1

REPORT INFORMATION
  Report Type: Other
  Country: GB (occurrence: GB)
  Receive Date: 20130115
  Receipt Date: 20130115
  Transmission Date: 20140127
  Serious: Yes (Other)
  Sender: FDA-Public Use
  Company Number: GB-WATSON-2012-23442

PATIENT
  Age: 45 Year
  Sex: Female
  Weight: 66 kg

DRUGS (1)
  1. TAMOXIFEN CITRATE (UNKNOWN) [Suspect]
     Indication: CANCER HORMONAL THERAPY
     Dosage: UNK
     Route: 048
     Dates: start: 20100620

REACTIONS (1)
  - Arthralgia [Not Recovered/Not Resolved]
